FAERS Safety Report 5934047-0 (Version None)
Quarter: 2008Q4

REPORT INFORMATION
  Report Type: 
  Country: None (occurrence: None)
  Receive Date: 20081024
  Receipt Date: 20081014
  Transmission Date: 20090506
  Serious: Yes (Disabling, Other)
  Sender: FDA-Public Use
  Company Number: 035572

PATIENT
  Age: 51 Year
  Sex: Female

DRUGS (2)
  1. ALENDRONATE SODIUM [Suspect]
     Dates: start: 20010101, end: 20060801
  2. PREDNISONE [Concomitant]

REACTIONS (7)
  - ARTHRALGIA [None]
  - FEMUR FRACTURE [None]
  - FOOT FRACTURE [None]
  - IMPAIRED HEALING [None]
  - LOW TURNOVER OSTEOPATHY [None]
  - OSTEOPOROSIS [None]
  - WALKING AID USER [None]
